FAERS Safety Report 10475429 (Version 1)
Quarter: 2014Q3

REPORT INFORMATION
  Report Type: Spontaneous
  Country: US (occurrence: None)
  Receive Date: 20140924
  Receipt Date: 20140924
  Transmission Date: 20150326
  Serious: No
  Sender: FDA-Public Use
  Company Number: None

PATIENT
  Age: 34 Year
  Sex: Female
  Weight: 65.77 kg

DRUGS (1)
  1. MALARONE [Suspect]
     Active Substance: ATOVAQUONE\PROGUANIL HYDROCHLORIDE
     Indication: MALARIA PROPHYLAXIS
     Dosage: 1 PILL A DAY, ONCE DAY, TAKEN BY MOUTH
     Route: 048
     Dates: start: 20140829, end: 20140922

REACTIONS (1)
  - Xanthopsia [None]

NARRATIVE: CASE EVENT DATE: 20140923
